FAERS Safety Report 20263870 (Version 2)
Quarter: 2022Q1

REPORT INFORMATION
  Report Type: Report from Study
  Country: US (occurrence: US)
  Receive Date: 20211231
  Receipt Date: 20220127
  Transmission Date: 20220424
  Serious: Yes (Other)
  Sender: FDA-Public Use
  Company Number: US-JAZZ-2021-US-022938

PATIENT
  Sex: Female

DRUGS (4)
  1. XYREM [Suspect]
     Active Substance: SODIUM OXYBATE
     Indication: Narcolepsy
     Dosage: 2.25 GRAM, BID
     Route: 048
     Dates: start: 201609, end: 201610
  2. XYREM [Suspect]
     Active Substance: SODIUM OXYBATE
     Indication: Cataplexy
     Dosage: DOSE ADJUSTMENT
     Route: 048
     Dates: start: 201610, end: 201706
  3. XYREM [Suspect]
     Active Substance: SODIUM OXYBATE
     Indication: Somnolence
     Dosage: 4 GRAM, FIRST DOSE
     Route: 048
     Dates: start: 201706
  4. XYREM [Suspect]
     Active Substance: SODIUM OXYBATE
     Dosage: 2 GRAM, SECOND DOSE
     Route: 048
     Dates: start: 201706

REACTIONS (2)
  - Clavicle fracture [Not Recovered/Not Resolved]
  - Fall [Recovered/Resolved]

NARRATIVE: CASE EVENT DATE: 20210101
